FAERS Safety Report 13407245 (Version 3)
Quarter: 2017Q3

REPORT INFORMATION
  Report Type: Spontaneous
  Country: US (occurrence: US)
  Receive Date: 20170405
  Receipt Date: 20170817
  Transmission Date: 20171127
  Serious: No
  Sender: FDA-Public Use
  Company Number: US-ACTELION-A-US2017-152007

PATIENT
  Age: 64 Year
  Sex: Female

DRUGS (1)
  1. OPSUMIT [Suspect]
     Active Substance: MACITENTAN
     Indication: PULMONARY ARTERIAL HYPERTENSION
     Dosage: 10 MG, UNK
     Route: 048
     Dates: start: 20170308, end: 20170428

REACTIONS (6)
  - Unevaluable event [Unknown]
  - Nasal congestion [Unknown]
  - Rhinorrhoea [Unknown]
  - Oedema [Unknown]
  - Fluid retention [Unknown]
  - Headache [Unknown]

NARRATIVE: CASE EVENT DATE: 20170321
